FAERS Safety Report 21582418 (Version 1)
Quarter: 2022Q4

REPORT INFORMATION
  Report Type: Report from Study
  Country: US (occurrence: US)
  Receive Date: 20221111
  Receipt Date: 20221111
  Transmission Date: 20230113
  Serious: No
  Sender: FDA-Public Use
  Company Number: US-ABBVIE-22K-163-4503558-00

PATIENT
  Sex: Male

DRUGS (7)
  1. SKYRIZI [Suspect]
     Active Substance: RISANKIZUMAB-RZAA
     Indication: Psoriasis
     Dosage: WEEK 4 AND THEN EVERY 12 WEEKS, STRENGTH 150 MG
     Route: 058
     Dates: start: 20110510
  2. SKYRIZI [Suspect]
     Active Substance: RISANKIZUMAB-RZAA
     Indication: Psoriasis
  3. 1000 ?g Vitamin b 12 (Cyanocobalamin) [Concomitant]
     Indication: Product used for unknown indication
  4. Beneprotein (Glycine max extract;Whey protein) [Concomitant]
     Indication: Product used for unknown indication
     Dosage: PROTEIN POWDER
  5. Nutrasense createam (Creatine) [Concomitant]
     Indication: Product used for unknown indication
     Dosage: POWDER
  6. CLOBETASOL PROPIONATE [Concomitant]
     Active Substance: CLOBETASOL PROPIONATE
     Indication: Product used for unknown indication
  7. Triamcinolone acetonide (Triamcinolone acetonide) [Concomitant]
     Indication: Product used for unknown indication

REACTIONS (3)
  - Therapeutic product effect incomplete [Recovering/Resolving]
  - Psoriasis [Recovering/Resolving]
  - Pruritus [Unknown]
